FAERS Safety Report 15822519 (Version 1)
Quarter: 2019Q1

REPORT INFORMATION
  Report Type: Spontaneous
  Country: US (occurrence: US)
  Receive Date: 20190114
  Receipt Date: 20190114
  Transmission Date: 20190417
  Serious: No
  Sender: FDA-Public Use
  Company Number: US-BAUSCH-BL-2017-033863

PATIENT
  Sex: Female

DRUGS (2)
  1. TOBRAMYCIN OPHTHALMIC SOLUTION USP 0.3% [Suspect]
     Active Substance: TOBRAMYCIN
     Indication: CONJUNCTIVITIS
     Route: 047
     Dates: start: 20171124
  2. TOBRAMYCIN OPHTHALMIC SOLUTION USP 0.3% [Suspect]
     Active Substance: TOBRAMYCIN
     Route: 047
     Dates: start: 2017, end: 20171201

REACTIONS (4)
  - Swelling [Not Recovered/Not Resolved]
  - Erythema [Not Recovered/Not Resolved]
  - Pruritus [Not Recovered/Not Resolved]
  - Lacrimation increased [Not Recovered/Not Resolved]

NARRATIVE: CASE EVENT DATE: 20171202
